FAERS Safety Report 5228802-2 (Version None)
Quarter: 2007Q1

REPORT INFORMATION
  Report Type: 
  Country: None (occurrence: None)
  Receive Date: 20070205
  Receipt Date: 20070123
  Transmission Date: 20070707
  Serious: Yes (Hospitalization)
  Sender: FDA-Public Use
  Company Number: JP-MERCK-0612USA03601

PATIENT
  Age: 85 Year
  Sex: Female

DRUGS (10)
  1. FOSAMAX [Suspect]
     Indication: OSTEOPOROSIS
     Route: 048
     Dates: start: 20061128, end: 20061207
  2. MUCOSTA [Concomitant]
     Route: 065
  3. SEDIEL [Concomitant]
     Route: 065
  4. PERSANTIN [Concomitant]
     Route: 065
  5. MERISLON [Concomitant]
     Route: 065
  6. LASIX [Concomitant]
     Route: 065
  7. FERROMIA [Concomitant]
     Route: 065
  8. POLLAKISU [Concomitant]
     Route: 065
  9. ALFACALCIDOL [Concomitant]
     Route: 065
  10. FAMOTIDINE [Concomitant]
     Route: 065

REACTIONS (1)
  - LIVER DISORDER [None]
